FAERS Safety Report 5060753-9 (Version None)
Quarter: 2006Q3

REPORT INFORMATION
  Report Type: 
  Country: None (occurrence: None)
  Receive Date: 20060725
  Receipt Date: 20060721
  Transmission Date: 20061208
  Serious: Yes (Life-Threatening, Hospitalization, Other)
  Sender: FDA-Public Use
  Company Number: DE-AVENTIS-200612146DE

PATIENT
  Age: 68 Year
  Sex: Female
  Weight: 77 kg

DRUGS (6)
  1. DOCETAXEL [Suspect]
     Indication: CHEMOTHERAPY
     Route: 042
     Dates: start: 20060511, end: 20060511
  2. GEMCITABINE [Suspect]
     Indication: CHEMOTHERAPY
     Route: 042
     Dates: start: 20060511, end: 20060511
  3. GEMCITABINE [Suspect]
     Route: 042
     Dates: start: 20060518, end: 20060518
  4. MCP [Concomitant]
     Route: 048
     Dates: start: 20060511, end: 20060516
  5. DEXAMETHASONE [Concomitant]
     Route: 048
     Dates: start: 20060510, end: 20060516
  6. KEVATRIL [Concomitant]
     Route: 048
     Dates: start: 20060511, end: 20060516

REACTIONS (2)
  - EMOTIONAL DISTRESS [None]
  - RESPIRATORY FAILURE [None]
